FAERS Safety Report 4817967-X (Version None)
Quarter: 2005Q4

REPORT INFORMATION
  Report Type: 
  Country: None (occurrence: None)
  Receive Date: 20051101
  Receipt Date: 20051101
  Transmission Date: 20060501
  Serious: Yes (Hospitalization)
  Sender: FDA-Public Use
  Company Number: None

PATIENT
  Age: 76 Year
  Sex: Male
  Weight: 134.2647 kg

DRUGS (22)
  1. FUROSEMIDE [Suspect]
     Indication: CARDIAC FAILURE CONGESTIVE
  2. FUROSEMIDE [Suspect]
     Indication: HYPERTENSION
  3. LISINOPRIL [Suspect]
     Indication: CARDIAC FAILURE CONGESTIVE
  4. LISINOPRIL [Suspect]
     Indication: DIABETES MELLITUS
  5. LISINOPRIL [Suspect]
     Indication: HYPERTENSION
  6. SPIRONOLACTONE [Suspect]
     Indication: CARDIAC FAILURE CONGESTIVE
  7. SPIRONOLACTONE [Suspect]
     Indication: HYPERTENSION
  8. TERAZOSIN 2MG QHS [Suspect]
     Indication: BENIGN PROSTATIC HYPERPLASIA
  9. . [Concomitant]
  10. ACETAMINOPHEN [Concomitant]
  11. ALBUTEROL SULFATE AND IPRATROPIUM BROMIDE [Concomitant]
  12. ASPIRIN [Concomitant]
  13. FOLIC ACID [Concomitant]
  14. FUROSEMIDE [Concomitant]
  15. HUMULIN R [Concomitant]
  16. LISINOPRIL [Concomitant]
  17. NITROGLYCERIN [Concomitant]
  18. SIMVASTATIN [Concomitant]
  19. SODIUM CHLORIDE [Concomitant]
  20. SPIRONOLACTONE [Concomitant]
  21. TERAZOSIN HCL [Concomitant]
  22. THEOPHYLLINE [Concomitant]

REACTIONS (2)
  - ASTHENIA [None]
  - HYPOTENSION [None]
